FAERS Safety Report 6444792-9 (Version None)
Quarter: 2009Q4

REPORT INFORMATION
  Report Type: 
  Country: None (occurrence: None)
  Receive Date: 20091118
  Receipt Date: 20091105
  Transmission Date: 20100525
  Serious: Yes (Other)
  Sender: FDA-Public Use
  Company Number: PHHY2009FR24992

PATIENT
  Age: 33 Year
  Sex: Female
  Weight: 66 kg

DRUGS (3)
  1. ZOMETA [Suspect]
     Indication: BREAST CANCER
     Dosage: UNK
     Dates: start: 20070101, end: 20090817
  2. AVASTIN [Suspect]
     Indication: METASTASES TO PLEURA
     Dosage: UNK
     Dates: start: 20080925
  3. CORTICOSTEROIDS [Concomitant]

REACTIONS (5)
  - ERYTHEMA [None]
  - OSTEONECROSIS [None]
  - PAIN [None]
  - SWELLING [None]
  - WISDOM TEETH REMOVAL [None]
